FAERS Safety Report 25278994 (Version 1)
Quarter: 2025Q2

REPORT INFORMATION
  Report Type: Spontaneous
  Country: US (occurrence: US)
  Receive Date: 20250507
  Receipt Date: 20250507
  Transmission Date: 20250717
  Serious: No
  Sender: MERZ
  Company Number: US-Merz Pharmaceuticals GmbH-2025040000174

PATIENT

DRUGS (2)
  1. XEOMIN [Suspect]
     Active Substance: INCOBOTULINUMTOXINA
     Indication: Skin wrinkling
     Dosage: 30 INTERNATIONAL UNIT
     Dates: start: 20250305, end: 20250305
  2. XEOMIN [Suspect]
     Active Substance: INCOBOTULINUMTOXINA
     Dosage: 15 INTERNATIONAL UNIT
     Dates: start: 20250326, end: 20250326

REACTIONS (1)
  - Drug ineffective [Unknown]

NARRATIVE: CASE EVENT DATE: 20250301
